FAERS Safety Report 4882242-4 (Version None)
Quarter: 2006Q1

REPORT INFORMATION
  Report Type: 
  Country: None (occurrence: None)
  Receive Date: 20060113
  Receipt Date: 20060113
  Transmission Date: 20060701
  Serious: Yes (Life-Threatening, Hospitalization)
  Sender: FDA-Public Use
  Company Number: None

PATIENT
  Sex: Male
  Weight: 29.8 kg

DRUGS (12)
  1. DAUNOMYCIN (50MG/M2) (1:5) [Suspect]
     Indication: ACUTE MYELOID LEUKAEMIA
     Dosage: 50MG IV X 3 DOSES FOR 2 CYCLES
     Route: 042
     Dates: start: 20050827
  2. DAUNOMYCIN (50MG/M2) (1:5) [Suspect]
     Indication: ACUTE MYELOID LEUKAEMIA
     Dosage: 50MG IV X 3 DOSES FOR 2 CYCLES
     Route: 042
     Dates: start: 20050829
  3. DAUNOMYCIN (50MG/M2) (1:5) [Suspect]
     Indication: ACUTE MYELOID LEUKAEMIA
     Dosage: 50MG IV X 3 DOSES FOR 2 CYCLES
     Route: 042
     Dates: start: 20050831
  4. DAUNOMYCIN (50MG/M2) (1:5) [Suspect]
     Indication: ACUTE MYELOID LEUKAEMIA
     Dosage: 50MG IV X 3 DOSES FOR 2 CYCLES
     Route: 042
     Dates: start: 20051004
  5. DAUNOMYCIN (50MG/M2) (1:5) [Suspect]
     Indication: ACUTE MYELOID LEUKAEMIA
     Dosage: 50MG IV X 3 DOSES FOR 2 CYCLES
     Route: 042
     Dates: start: 20051005
  6. DAUNOMYCIN (50MG/M2) (1:5) [Suspect]
     Indication: ACUTE MYELOID LEUKAEMIA
     Dosage: 50MG IV X 3 DOSES FOR 2 CYCLES
     Route: 042
     Dates: start: 20051008
  7. MITOXANTRONE [Suspect]
     Indication: ACUTE MYELOID LEUKAEMIA
     Dosage: 10 MG IV X 2 DAYS
     Route: 042
     Dates: start: 20051122
  8. MITOXANTRONE [Suspect]
     Indication: ACUTE MYELOID LEUKAEMIA
     Dosage: 10 MG IV X 2 DAYS
     Route: 042
     Dates: start: 20051123
  9. ACYCLOVIR [Concomitant]
  10. BACTRIM [Concomitant]
  11. ZANTAC [Concomitant]
  12. VORICONAZOLE [Concomitant]

REACTIONS (7)
  - CATHETER RELATED COMPLICATION [None]
  - ECHOCARDIOGRAM ABNORMAL [None]
  - GALLOP RHYTHM PRESENT [None]
  - NEUTROPENIA [None]
  - PYREXIA [None]
  - SINUS TACHYCARDIA [None]
  - TACHYPNOEA [None]
